FAERS Safety Report 8505916-2 (Version None)
Quarter: 2012Q3

REPORT INFORMATION
  Report Type: 
  Country: None (occurrence: None)
  Receive Date: 20120712
  Receipt Date: 20120705
  Transmission Date: 20120928
  Serious: Yes (Other)
  Sender: FDA-Public Use
  Company Number: JP-PFIZER INC-2012136678

PATIENT
  Sex: Female
  Weight: 43 kg

DRUGS (6)
  1. CARBENIN [Concomitant]
     Indication: PNEUMONIA
     Dosage: 0.5 G, 2X/DAY
     Route: 042
     Dates: start: 20120526, end: 20120528
  2. ZYVOX [Suspect]
     Dosage: 600 MG, 1X/DAY
     Route: 042
     Dates: start: 20120625
  3. VFEND [Concomitant]
     Indication: SYSTEMIC MYCOSIS
     Dosage: 100 MG, 2X/DAY
     Route: 042
     Dates: start: 20120323, end: 20120528
  4. ZYVOX [Suspect]
     Indication: STAPHYLOCOCCAL INFECTION
     Dosage: 600 MG, 2X/DAY
     Route: 042
     Dates: start: 20120525, end: 20120606
  5. ZYVOX [Suspect]
     Indication: STAPHYLOCOCCAL SEPSIS
     Dosage: 600 MG, 1X/DAY
     Route: 042
     Dates: start: 20120607, end: 20120618
  6. AMBISOME [Concomitant]
     Dosage: 200 MG, 1X/DAY
     Route: 042
     Dates: start: 20120605

REACTIONS (1)
  - RENAL IMPAIRMENT [None]
